FAERS Safety Report 15907347 (Version 5)
Quarter: 2020Q4

REPORT INFORMATION
  Report Type: Report from Study
  Country: US (occurrence: US)
  Receive Date: 20190204
  Receipt Date: 20201007
  Transmission Date: 20210113
  Serious: Yes (Hospitalization, Other)
  Sender: FDA-Public Use
  Company Number: US-SA-2019SA027443

PATIENT

DRUGS (2)
  1. TERIFLUNOMIDE. [Suspect]
     Active Substance: TERIFLUNOMIDE
     Dosage: 14 MG, QD
     Route: 048
     Dates: end: 202009
  2. TERIFLUNOMIDE. [Suspect]
     Active Substance: TERIFLUNOMIDE
     Indication: MULTIPLE SCLEROSIS
     Dosage: 14 MG, QD
     Route: 048
     Dates: start: 20181109

REACTIONS (15)
  - Lymphadenopathy [Unknown]
  - Abdominal pain [Unknown]
  - Renal cancer [Unknown]
  - Neuropathy peripheral [Unknown]
  - Cerebral amyloid angiopathy [Not Recovered/Not Resolved]
  - Chronic obstructive pulmonary disease [Not Recovered/Not Resolved]
  - Feeling abnormal [Unknown]
  - Multiple sclerosis relapse [Unknown]
  - Abdominal distension [Unknown]
  - Alopecia [Unknown]
  - Dementia Alzheimer^s type [Not Recovered/Not Resolved]
  - Product dose omission issue [Unknown]
  - Limb discomfort [Unknown]
  - Neuritic plaques [Not Recovered/Not Resolved]
  - Expired product administered [Unknown]

NARRATIVE: CASE EVENT DATE: 2018
